FAERS Safety Report 12739235 (Version 3)
Quarter: 2016Q3

REPORT INFORMATION
  Report Type: Report from Study
  Country: KR (occurrence: KR)
  Receive Date: 20160913
  Receipt Date: 20160923
  Transmission Date: 20161109
  Serious: Yes (Death, Hospitalization)
  Sender: FDA-Public Use
  Company Number: KR-SA-2016SA166414

PATIENT
  Age: 6 Year
  Sex: Male
  Weight: 26 kg

DRUGS (7)
  1. CLOFARABINE [Suspect]
     Active Substance: CLOFARABINE
     Indication: ACUTE LYMPHOCYTIC LEUKAEMIA
     Route: 065
     Dates: start: 20160823, end: 20160827
  2. DEXAMETHASONE SODIUM PHOSPHATE. [Concomitant]
     Active Substance: DEXAMETHASONE SODIUM PHOSPHATE
     Indication: ANTIINFLAMMATORY THERAPY
     Route: 042
     Dates: start: 20160907, end: 20160908
  3. SODIUM BICARBONATE. [Concomitant]
     Active Substance: SODIUM BICARBONATE
     Indication: ANTIINFLAMMATORY THERAPY
     Route: 042
     Dates: start: 20160907, end: 20160908
  4. DOPAMINE HYDROCHLORIDE. [Concomitant]
     Active Substance: DOPAMINE HYDROCHLORIDE
     Route: 042
     Dates: start: 20160907, end: 20160908
  5. GRASIN [Concomitant]
     Indication: COLONY STIMULATING FACTOR THERAPY
     Route: 058
     Dates: start: 20160905
  6. EPINEPHRINE. [Concomitant]
     Active Substance: EPINEPHRINE
     Route: 042
     Dates: start: 20160907, end: 20160908
  7. AMBISOME [Concomitant]
     Active Substance: AMPHOTERICIN B
     Indication: FUNGAL INFECTION
     Route: 042
     Dates: start: 20160907, end: 20160908

REACTIONS (2)
  - Sepsis [Fatal]
  - Febrile neutropenia [Fatal]

NARRATIVE: CASE EVENT DATE: 20160901
